FAERS Safety Report 9929484 (Version 2)
Quarter: 2014Q1

REPORT INFORMATION
  Report Type: Spontaneous
  Country: IT (occurrence: IT)
  Receive Date: 20140227
  Receipt Date: 20140326
  Transmission Date: 20141002
  Serious: Yes (Hospitalization)
  Sender: FDA-Public Use
  Company Number: PHHY2014IT023003

PATIENT
  Sex: Female

DRUGS (4)
  1. SERTRALINE [Suspect]
     Dosage: 450 MG, ONCE/SINGLE
     Route: 048
     Dates: start: 20140202, end: 20140202
  2. XANAX [Suspect]
     Dosage: 10 MG, ONCE/SINGLE
     Route: 048
     Dates: start: 20140202, end: 20140202
  3. QUETIAPINE [Concomitant]
  4. FLURAZEPAM [Concomitant]

REACTIONS (1)
  - Suicide attempt [Recovering/Resolving]
